FAERS Safety Report 9645356 (Version 1)
Quarter: 2013Q3

REPORT INFORMATION
  Report Type: Spontaneous
  Country: JP (occurrence: None)
  Receive Date: 20130927
  Receipt Date: 20130927
  Transmission Date: 20140515
  Serious: Yes (Other)
  Sender: FDA-Public Use
  Company Number: THYM-1003979

PATIENT
  Age: 36 Year
  Sex: Male

DRUGS (1)
  1. THYMOGLOBULIN [Suspect]
     Indication: LIVER TRANSPLANT REJECTION
     Dosage: POWDER FOR SOLUTION FOR INFUSION / UNKNOWN TIME TO ONSET: 15 DAY(S)
     Dates: start: 20111013

REACTIONS (3)
  - Transplant rejection [None]
  - Pyrexia [None]
  - Pruritus [None]
